FAERS Safety Report 6684290-0 (Version None)
Quarter: 2010Q2

REPORT INFORMATION
  Report Type: 
  Country: None (occurrence: None)
  Receive Date: 20100416
  Receipt Date: 20100401
  Transmission Date: 20101027
  Serious: Yes (Hospitalization, Other)
  Sender: FDA-Public Use
  Company Number: PHHY2010FI02168

PATIENT
  Age: 73 Year
  Sex: Female

DRUGS (12)
  1. LEPONEX [Suspect]
     Indication: SCHIZOPHRENIA
     Dosage: 25 MG, ONCE A DAY
     Dates: start: 20091110
  2. LEPONEX [Suspect]
     Dosage: 200 MG, QHS
     Dates: start: 20091202
  3. ASASANTIN [Concomitant]
  4. SIMVASTATIN [Concomitant]
     Dosage: 10 MG, A DAY
  5. TENOX (TEMAZEPAM) [Concomitant]
     Dosage: 20 MG, A DAY
  6. ABILIFY [Concomitant]
     Dosage: 15 MG, A DAY
  7. CIRCADIN [Concomitant]
     Dosage: 2 MG TWO DOSES A DAY
  8. MOVICOL [Concomitant]
  9. CEDAX ^ESSEX^ [Concomitant]
  10. NEXIUM [Concomitant]
     Dosage: 20 MG, UNK
  11. ATROVENT [Concomitant]
     Dosage: TWO DOSES TWICE A DAY
  12. OPAMOX [Concomitant]

REACTIONS (13)
  - BLOOD ALBUMIN DECREASED [None]
  - C-REACTIVE PROTEIN INCREASED [None]
  - COUGH [None]
  - CROHN'S DISEASE [None]
  - DIARRHOEA [None]
  - DYSPHONIA [None]
  - EOSINOPHIL COUNT DECREASED [None]
  - INFECTION [None]
  - MALABSORPTION [None]
  - MALNUTRITION [None]
  - PYELONEPHRITIS [None]
  - PYREXIA [None]
  - RESPIRATORY DISORDER [None]
